FAERS Safety Report 16847730 (Version 3)
Quarter: 2021Q2

REPORT INFORMATION
  Report Type: Other
  Country: US (occurrence: US)
  Receive Date: 20190924
  Receipt Date: 20210621
  Transmission Date: 20210716
  Serious: No
  Sender: FDA-Public Use
  Company Number: US-ACORDA-ACO_161121_2019

PATIENT
  Sex: Female

DRUGS (3)
  1. SELEGILINE [Concomitant]
     Active Substance: SELEGILINE
     Indication: PRODUCT USED FOR UNKNOWN INDICATION
     Dosage: UNK
     Route: 065
  2. INBRIJA [Suspect]
     Active Substance: LEVODOPA
     Indication: PARKINSON^S DISEASE
     Dosage: 2 CAPSULES (84MG) AS NEEDED. NOT TO EXCEED 5 DOSES A DAY
     Dates: start: 201909
  3. INBRIJA [Suspect]
     Active Substance: LEVODOPA
     Indication: ON AND OFF PHENOMENON

REACTIONS (5)
  - Upper-airway cough syndrome [Unknown]
  - Cough [Not Recovered/Not Resolved]
  - Cough [Unknown]
  - Throat irritation [Unknown]
  - Incorrect route of product administration [Unknown]
